FAERS Safety Report 7038093-8 (Version None)
Quarter: 2010Q4

REPORT INFORMATION
  Report Type: 
  Country: None (occurrence: None)
  Receive Date: 20101011
  Receipt Date: 20100927
  Transmission Date: 20110411
  Serious: Yes (Hospitalization, Other)
  Sender: FDA-Public Use
  Company Number: PHHY2010TW64331

PATIENT
  Sex: Male
  Weight: 46 kg

DRUGS (1)
  1. ICL670A ICL+ [Suspect]
     Indication: APLASTIC ANAEMIA
     Dosage: 8 DF, QD/ 1000 MG PER DAY
     Route: 048
     Dates: start: 20100723

REACTIONS (5)
  - BRONCHOPNEUMONIA [None]
  - CHEST PAIN [None]
  - CHILLS [None]
  - PYREXIA [None]
  - RED BLOOD CELL COUNT INCREASED [None]
